FAERS Safety Report 5747810-6 (Version None)
Quarter: 2008Q2

REPORT INFORMATION
  Report Type: 
  Country: None (occurrence: None)
  Receive Date: 20080523
  Receipt Date: 20080516
  Transmission Date: 20081010
  Serious: Yes (Other)
  Sender: FDA-Public Use
  Company Number: B0457421A

PATIENT
  Age: 36 Year
  Sex: Female

DRUGS (2)
  1. SERETIDE [Suspect]
     Route: 055
     Dates: start: 20050101
  2. DIOVAN HCT [Concomitant]
     Indication: ESSENTIAL HYPERTENSION
     Dosage: 40MG PER DAY
     Route: 048
     Dates: start: 20050101

REACTIONS (2)
  - ABORTION [None]
  - DRUG EXPOSURE DURING PREGNANCY [None]
